FAERS Safety Report 16342101 (Version 1)
Quarter: 2019Q2

REPORT INFORMATION
  Report Type: Spontaneous
  Country: US (occurrence: US)
  Receive Date: 20190522
  Receipt Date: 20190522
  Transmission Date: 20190711
  Serious: Yes (Other)
  Sender: FDA-Public Use
  Company Number: US-ASTRAZENECA-2019SE74524

PATIENT
  Sex: Male

DRUGS (2)
  1. TEMODAR [Concomitant]
     Active Substance: TEMOZOLOMIDE
     Indication: GLIOMA
  2. LYNPARZA [Suspect]
     Active Substance: OLAPARIB
     Indication: GLIOMA
     Dosage: 300.0MG UNKNOWN
     Route: 048

REACTIONS (4)
  - Pancytopenia [Recovering/Resolving]
  - Malignant neoplasm progression [Unknown]
  - Product use in unapproved indication [Unknown]
  - Off label use [Unknown]
